FAERS Safety Report 7202728-7 (Version None)
Quarter: 2010Q4

REPORT INFORMATION
  Report Type: 
  Country: None (occurrence: None)
  Receive Date: 20101216
  Receipt Date: 20101206
  Transmission Date: 20110411
  Serious: Yes (Hospitalization)
  Sender: FDA-Public Use
  Company Number: 2010EU006582

PATIENT
  Age: 51 Year
  Sex: Male

DRUGS (2)
  1. TACROLIMUS [Suspect]
     Indication: LIVER TRANSPLANT
     Dosage: 7 MG, UID/QD, ORAL
     Route: 048
     Dates: start: 20081105, end: 20101105
  2. MYCOPHENOLATE MOFETIL [Suspect]
     Indication: LIVER TRANSPLANT
     Dosage: 2000 MG, UID/QD, ORAL
     Route: 048
     Dates: start: 20081105, end: 20101005

REACTIONS (4)
  - FALL [None]
  - FEMUR FRACTURE [None]
  - HEPATIC CANCER METASTATIC [None]
  - PATHOLOGICAL FRACTURE [None]
